FAERS Safety Report 10526316 (Version 1)
Quarter: 2014Q4

REPORT INFORMATION
  Report Type: Spontaneous
  Country: US (occurrence: US)
  Receive Date: 20141019
  Receipt Date: 20141019
  Transmission Date: 20150528
  Serious: No
  Sender: FDA-Public Use
  Company Number: US-ASTRAZENECA-2014SE70776

PATIENT
  Sex: Female
  Weight: 61.7 kg

DRUGS (8)
  1. PROBIOTICS [Concomitant]
     Active Substance: PROBIOTICS NOS
     Indication: FATIGUE
     Dosage: UNKNOWN DAILY
     Route: 048
     Dates: start: 201409
  2. PROBIOTICS [Concomitant]
     Active Substance: PROBIOTICS NOS
     Indication: DISTURBANCE IN ATTENTION
     Dosage: UNKNOWN DAILY
     Route: 048
     Dates: start: 201409
  3. NEXIUM [Suspect]
     Active Substance: ESOMEPRAZOLE MAGNESIUM
     Indication: OESOPHAGITIS
     Route: 048
     Dates: start: 201405, end: 20140912
  4. DIGESTIVE ENZYMES [Concomitant]
     Active Substance: UNSPECIFIED INGREDIENT
     Indication: FATIGUE
     Dosage: UNKNOWN DAILY
     Route: 048
     Dates: start: 201409
  5. VITAMIN D [Concomitant]
     Active Substance: CHOLECALCIFEROL
     Indication: OSTEOPOROSIS
     Dosage: UNKNOWN DAILY
     Route: 048
  6. PRILOSEC OTC [Suspect]
     Active Substance: OMEPRAZOLE MAGNESIUM
     Indication: OESOPHAGITIS
     Route: 048
     Dates: start: 20140510, end: 201405
  7. DIGESTIVE ENZYMES [Concomitant]
     Active Substance: UNSPECIFIED INGREDIENT
     Indication: DISTURBANCE IN ATTENTION
     Dosage: UNKNOWN DAILY
     Route: 048
     Dates: start: 201409
  8. CALCIUM [Concomitant]
     Active Substance: CALCIUM
     Indication: OSTEOPOROSIS
     Dosage: UNKNOWN DAILY
     Route: 048

REACTIONS (4)
  - Dyspepsia [Unknown]
  - Oropharyngeal pain [Unknown]
  - Chest discomfort [Unknown]
  - Wheezing [Unknown]

NARRATIVE: CASE EVENT DATE: 20140917
